FAERS Safety Report 4334680-6 (Version None)
Quarter: 2004Q1

REPORT INFORMATION
  Report Type: 
  Country: None (occurrence: None)
  Receive Date: 20040329
  Receipt Date: 20031209
  Transmission Date: 20041129
  Serious: No
  Sender: FDA-Public Use
  Company Number: 03P-163-0244326

PATIENT
  Age: 60 Year
  Sex: Female

DRUGS (12)
  1. HUMIRA [Suspect]
     Indication: RHEUMATOID ARTHRITIS
     Dosage: 40 MG, 1 IN 2 WK, SUBCUTANEOUS
     Route: 058
     Dates: start: 20030401
  2. NICOTINE [Concomitant]
  3. HYDROXYCHLOROQUINE PHOSPHATE [Concomitant]
  4. METHOTREXATE [Concomitant]
  5. SULFASALAZINE [Concomitant]
  6. PREDNISONE [Concomitant]
  7. RANITIDINE HYDROCHLORIDE [Concomitant]
  8. SERETIDE MITE [Concomitant]
  9. FOLIC ACID [Concomitant]
  10. ALBUTEROL SULFATE [Concomitant]
  11. LITHIUM [Concomitant]
  12. MELORIL [Concomitant]

REACTIONS (1)
  - DIARRHOEA [None]
